FAERS Safety Report 18105501 (Version 1)
Quarter: 2020Q3

REPORT INFORMATION
  Report Type: Spontaneous
  Country: DE (occurrence: DE)
  Receive Date: 20200804
  Receipt Date: 20200804
  Transmission Date: 20201103
  Serious: Yes (Other)
  Sender: FDA-Public Use
  Company Number: DE-UCBSA-2020030278

PATIENT
  Age: 80 Year
  Sex: Male

DRUGS (4)
  1. STALEVO [Suspect]
     Active Substance: CARBIDOPA\ENTACAPONE\LEVODOPA
     Indication: ON AND OFF PHENOMENON
     Dosage: LEVODOPA DOSE: 550 (NO UNIT PROVIDED), UNKNOWN
  2. NEUPRO [Suspect]
     Active Substance: ROTIGOTINE
     Indication: ON AND OFF PHENOMENON
     Dosage: UNKNOWN
  3. NEUPRO [Suspect]
     Active Substance: ROTIGOTINE
     Indication: OFF LABEL USE
  4. ONGENTYS [Suspect]
     Active Substance: OPICAPONE
     Indication: ON AND OFF PHENOMENON
     Dosage: UNKNOWN

REACTIONS (12)
  - Delusion [Unknown]
  - Bradykinesia [Unknown]
  - Therapeutic response shortened [Unknown]
  - Sleep disorder [Unknown]
  - Gait disturbance [Unknown]
  - Off label use [Unknown]
  - Hallucination [Unknown]
  - Anosmia [Unknown]
  - Balance disorder [Unknown]
  - Tremor [Unknown]
  - Muscle rigidity [Unknown]
  - Freezing phenomenon [Unknown]
